FAERS Safety Report 8896244 (Version 1)
Quarter: 2012Q4

REPORT INFORMATION
  Report Type: Spontaneous
  Country: US (occurrence: None)
  Receive Date: 20121106
  Receipt Date: 20121106
  Transmission Date: 20130627
  Serious: No
  Sender: FDA-Public Use
  Company Number: None

PATIENT
  Sex: Female

DRUGS (4)
  1. ESCITALOPRAM [Suspect]
     Indication: DEPRESSION
     Dosage: 5 mg 1 daily po
     Route: 048
     Dates: start: 20121025, end: 20121105
  2. ESCITALOPRAM [Suspect]
     Indication: DEPRESSION
     Dosage: 5 mg 1 daily po
     Route: 048
     Dates: start: 20121025, end: 20121105
  3. ESCITALOPRAM [Suspect]
     Indication: DEPRESSION
     Dosage: 10mg 1 daily po
     Route: 048
     Dates: start: 20120709, end: 20120829
  4. ESCITALOPRAM [Suspect]
     Indication: DEPRESSION
     Dosage: 10mg 1 daily po
     Route: 048
     Dates: start: 20120709, end: 20120829

REACTIONS (2)
  - Product substitution issue [None]
  - Drug effect decreased [None]
